FAERS Safety Report 15839223 (Version 3)
Quarter: 2019Q1

REPORT INFORMATION
  Report Type: Spontaneous
  Country: GR (occurrence: GR)
  Receive Date: 20190117
  Receipt Date: 20190204
  Transmission Date: 20190417
  Serious: Yes (Hospitalization, Other)
  Sender: FDA-Public Use
  Company Number: GR-JNJFOC-20190119214

PATIENT
  Age: 42 Year
  Sex: Male

DRUGS (5)
  1. PREZOLON [Concomitant]
     Active Substance: PREDNISOLONE
     Indication: POSTOPERATIVE CARE
     Route: 065
  2. OMEPRAZOLE. [Concomitant]
     Active Substance: OMEPRAZOLE
     Route: 065
  3. LYBEREN [Suspect]
     Active Substance: LEVETIRACETAM
     Indication: POSTOPERATIVE CARE
     Route: 048
     Dates: start: 20190110
  4. LYBEREN [Suspect]
     Active Substance: LEVETIRACETAM
     Indication: POSTOPERATIVE CARE
     Route: 048
     Dates: start: 20181025, end: 2019
  5. XARELTO [Suspect]
     Active Substance: RIVAROXABAN
     Indication: ATRIAL FIBRILLATION
     Route: 048
     Dates: start: 20180226

REACTIONS (5)
  - Localised oedema [Recovering/Resolving]
  - Rash [Recovering/Resolving]
  - Extradural haematoma [Unknown]
  - Pruritus [Recovering/Resolving]
  - Hyponatraemia [Recovered/Resolved]

NARRATIVE: CASE EVENT DATE: 2018
